FAERS Safety Report 19966683 (Version 1)
Quarter: 2021Q4

REPORT INFORMATION
  Report Type: Spontaneous
  Country: US (occurrence: US)
  Receive Date: 20211018
  Receipt Date: 20211018
  Transmission Date: 20220303
  Serious: Yes (Death, Other)
  Sender: FDA-Public Use
  Company Number: US-SA-SAC20211015000973

PATIENT
  Sex: Female

DRUGS (1)
  1. LANTUS SOLOSTAR [Suspect]
     Active Substance: INSULIN GLARGINE
     Indication: Type 2 diabetes mellitus
     Dosage: 22 IU, Q12H
     Route: 065

REACTIONS (4)
  - Brain injury [Fatal]
  - Neoplasm malignant [Fatal]
  - Blood glucose abnormal [Unknown]
  - Inappropriate schedule of product administration [Unknown]
